FAERS Safety Report 12243963 (Version 3)
Quarter: 2016Q2

REPORT INFORMATION
  Report Type: Spontaneous
  Country: JP (occurrence: JP)
  Receive Date: 20160406
  Receipt Date: 20160531
  Transmission Date: 20160815
  Serious: Yes (Other)
  Sender: FDA-Public Use
  Company Number: JP-B.I. PHARMACEUTICALS,INC./RIDGEFIELD-2016-BI-20170BI

PATIENT
  Age: 46 Year
  Sex: Male
  Weight: 53.7 kg

DRUGS (8)
  1. STAVUDINE. [Concomitant]
     Active Substance: STAVUDINE
     Indication: HIV INFECTION
     Dosage: 80 MG
     Route: 065
     Dates: start: 1998
  2. LAMIVUDINE. [Concomitant]
     Active Substance: LAMIVUDINE
     Indication: HIV INFECTION
     Dosage: 300 MG
     Route: 065
     Dates: start: 1998
  3. GLIMEPIRIDE. [Concomitant]
     Active Substance: GLIMEPIRIDE
     Indication: HYPERGLYCAEMIA
     Route: 065
     Dates: start: 2010
  4. VIRAMUNE [Suspect]
     Active Substance: NEVIRAPINE
     Indication: HIV INFECTION
     Dosage: 400 MG
     Route: 065
     Dates: start: 1999
  5. LAMIVUDINE. [Concomitant]
     Active Substance: LAMIVUDINE
     Dosage: 300 MG
     Route: 065
  6. SITAGLIPTIN PHOSPHATE HYDRATE [Concomitant]
     Dosage: 50 MG
     Route: 065
  7. SITAGLIPTIN PHOSPHATE HYDRATE [Concomitant]
     Indication: HYPERGLYCAEMIA
     Route: 065
     Dates: start: 2011
  8. GLIMEPIRIDE. [Concomitant]
     Active Substance: GLIMEPIRIDE
     Dosage: 2 MG
     Route: 065

REACTIONS (2)
  - Lipodystrophy acquired [Unknown]
  - Hypothyroidism [Unknown]
